FAERS Safety Report 14188755 (Version 1)
Quarter: 2017Q4

REPORT INFORMATION
  Report Type: Other
  Country: GB (occurrence: IN)
  Receive Date: 20171114
  Receipt Date: 20171114
  Transmission Date: 20180321
  Serious: Yes (Life-Threatening, Hospitalization, Other)
  Sender: FDA-Public Use
  Company Number: IN-INTERNATIONAL MEDICATION SYSTEMS, LIMITED-2034058

PATIENT
  Age: 3 Month
  Sex: Male
  Weight: 3.9 kg

DRUGS (4)
  1. NEOSTIGMINE METHYLSULFATE. [Concomitant]
     Active Substance: NEOSTIGMINE METHYLSULFATE
  2. GLYCOPYRRONIUM BROMIDE [Concomitant]
     Active Substance: GLYCOPYRRONIUM
  3. XYLOCARD INJECTION, 20 MG/ML [Suspect]
     Active Substance: LIDOCAINE HYDROCHLORIDE
     Route: 042
  4. PROPOFOL. [Concomitant]
     Active Substance: PROPOFOL

REACTIONS (7)
  - Blood pressure decreased [Recovered/Resolved]
  - Generalised tonic-clonic seizure [Recovered/Resolved]
  - Electrocardiogram abnormal [Recovered/Resolved]
  - Heart rate decreased [Recovered/Resolved]
  - Toxicity to various agents [Unknown]
  - Partial seizures [Recovered/Resolved]
  - Accidental overdose [Unknown]
